FAERS Safety Report 5073469-X (Version None)
Quarter: 2006Q3

REPORT INFORMATION
  Report Type: 
  Country: None (occurrence: None)
  Receive Date: 20060808
  Receipt Date: 20060222
  Transmission Date: 20061208
  Serious: Yes (Hospitalization)
  Sender: FDA-Public Use
  Company Number: FR-BRISTOL-MYERS SQUIBB COMPANY-13294061

PATIENT
  Age: 82 Year
  Sex: Female

DRUGS (2)
  1. ELISOR TABS [Suspect]
     Indication: HYPERCHOLESTEROLAEMIA
     Route: 048
     Dates: end: 20060131
  2. LEVOTHYROXINE SODIUM [Concomitant]
     Indication: HYPOTHYROIDISM
     Dosage: DOSAGE FORM = UG/D

REACTIONS (3)
  - MUSCULAR WEAKNESS [None]
  - OEDEMA [None]
  - RHABDOMYOLYSIS [None]
